FAERS Safety Report 22390943 (Version 4)
Quarter: 2024Q3

REPORT INFORMATION
  Report Type: Report from Study
  Country: IN (occurrence: IN)
  Receive Date: 20230601
  Receipt Date: 20240905
  Transmission Date: 20241017
  Serious: Yes (Other)
  Sender: ROCHE
  Company Number: IN-ROCHE-3256774

PATIENT
  Age: 61 Year
  Sex: Female

DRUGS (2)
  1. KADCYLA [Suspect]
     Active Substance: ADO-TRASTUZUMAB EMTANSINE
     Indication: Breast cancer metastatic
     Dosage: INTERVAL 30 DAYS
     Route: 042
  2. KADCYLA [Suspect]
     Active Substance: ADO-TRASTUZUMAB EMTANSINE
     Route: 042

REACTIONS (14)
  - Thrombocytopenia [Unknown]
  - Hyperbilirubinaemia [Unknown]
  - Rectal haemorrhage [Unknown]
  - Pyrexia [Unknown]
  - Inflammation [Unknown]
  - Off label use [Unknown]
  - Dizziness [Unknown]
  - Gingival bleeding [Unknown]
  - Vertigo [Unknown]
  - Vomiting [Unknown]
  - Joint injury [Unknown]
  - Joint swelling [Unknown]
  - Limb injury [Unknown]
  - Fall [Unknown]

NARRATIVE: CASE EVENT DATE: 20231013
